FAERS Safety Report 8255982-7 (Version None)
Quarter: 2012Q2

REPORT INFORMATION
  Report Type: 
  Country: None (occurrence: None)
  Receive Date: 20120403
  Receipt Date: 20120328
  Transmission Date: 20120825
  Serious: Yes (Death, Hospitalization)
  Sender: FDA-Public Use
  Company Number: US-SANOFI-AVENTIS-2012SA021597

PATIENT

DRUGS (5)
  1. CAPECITABINE [Suspect]
     Indication: RECTAL CANCER
     Dosage: DOSE- 1650 MG/M2/DAILY, MONDAY TILL FRIDAY DURING RADIOTHERAPY
     Route: 048
  2. THERAPEUTIC RADIOPHARMACEUTICALS [Suspect]
     Dosage: DOSE- 5.4 GY IN 3 FRACTIONS
     Route: 065
  3. THERAPEUTIC RADIOPHARMACEUTICALS [Suspect]
     Dosage: DOSE- 45 GY IN 25 FRACTIONS
     Route: 065
  4. OXALIPLATIN [Suspect]
     Indication: RECTAL CANCER
     Dosage: DOSE- 50 MG/M2 WEEKLY IN FIVE DOSES
     Route: 042
  5. THERAPEUTIC RADIOPHARMACEUTICALS [Suspect]
     Indication: RECTAL CANCER
     Dosage: DOSE- 1.8 GY/FRACTION, 5 FRACTIONS WEEKLY
     Route: 065

REACTIONS (1)
  - DIARRHOEA [None]
